FAERS Safety Report 19847342 (Version 1)
Quarter: 2021Q3

REPORT INFORMATION
  Report Type: Spontaneous
  Country: GB (occurrence: US)
  Receive Date: 20210917
  Receipt Date: 20210917
  Transmission Date: 20211014
  Serious: Yes (Other)
  Sender: FDA-Public Use
  Company Number: US-ELI_LILLY_AND_COMPANY-US202109002538

PATIENT
  Age: 70 Year
  Sex: Male

DRUGS (2)
  1. DOCETAXEL. [Suspect]
     Active Substance: DOCETAXEL
     Indication: PLEOMORPHIC MALIGNANT FIBROUS HISTIOCYTOMA
     Dosage: UNK UNK, UNKNOWN
     Route: 065
  2. GEMCITABINE HYDROCHLORIDE. [Suspect]
     Active Substance: GEMCITABINE HYDROCHLORIDE
     Indication: PLEOMORPHIC MALIGNANT FIBROUS HISTIOCYTOMA
     Dosage: UNK UNK, UNKNOWN
     Route: 065

REACTIONS (1)
  - Toxicity to various agents [Unknown]
